FAERS Safety Report 9238013 (Version 1)
Quarter: 2013Q1

REPORT INFORMATION
  Report Type: Spontaneous
  Country: US (occurrence: None)
  Receive Date: 20121107
  Receipt Date: 20121107
  Transmission Date: 20140127
  Serious: No
  Sender: FDA-Public Use
  Company Number: 2012HGS-003912

PATIENT
  Age: 28 Year
  Sex: Female

DRUGS (9)
  1. BENLYSTA [Suspect]
     Indication: SYSTEMIC LUPUS ERYTHEMATOSUS
     Route: 041
     Dates: start: 20120511
  2. CLARITIN (LORATADINE) (LORATADINE) [Concomitant]
  3. CELLCEPT(MYCOPHENOLATE MOFETIL) (MYCOPHENOLATE MOFETIL) [Concomitant]
  4. PLAQUENIL (HYDROXYCHLOROQUINE SULFATE) (HYDROXYCHLOROQUINE SULFATE) [Concomitant]
  5. TYLENOL WITH CODEINE #3 (PANADEINE CO) (CODEINE PHOSPHATE, PARACETAMOL) [Concomitant]
  6. ULTRACET (ULTRACET) (PARACETAMOL, TRAMADOL HYDROCHLORIDE) [Concomitant]
  7. TOPROL XL (METOPROLOL SUCCINATE) (METOPROLOL SUCCINATE) [Concomitant]
  8. PREDNISONE (PREDNISONE) (PREDNISONE) [Concomitant]
  9. ENALAPRIL (ENALAPRIL MALEATE) (ENALAPRIL MALEATE) [Concomitant]

REACTIONS (1)
  - Headache [None]
